FAERS Safety Report 5483878-2 (Version None)
Quarter: 2007Q4

REPORT INFORMATION
  Report Type: 
  Country: None (occurrence: None)
  Receive Date: 20071010
  Receipt Date: 20071010
  Transmission Date: 20080405
  Serious: Yes (Life-Threatening, Hospitalization)
  Sender: FDA-Public Use
  Company Number: None

PATIENT
  Age: 42 Year
  Sex: Female
  Weight: 63.5036 kg

DRUGS (1)
  1. BARIUM [Suspect]
     Indication: COMPUTERISED TOMOGRAM
     Dates: start: 20071002, end: 20071003

REACTIONS (9)
  - AGITATION [None]
  - CONFUSIONAL STATE [None]
  - DIZZINESS [None]
  - DYSPNOEA [None]
  - METAL POISONING [None]
  - PRURITUS GENERALISED [None]
  - RASH [None]
  - SKIN DISCOLOURATION [None]
  - TINNITUS [None]
